FAERS Safety Report 8067953-4 (Version None)
Quarter: 2012Q1

REPORT INFORMATION
  Report Type: 
  Country: None (occurrence: None)
  Receive Date: 20120124
  Receipt Date: 20110906
  Transmission Date: 20120608
  Serious: No
  Sender: FDA-Public Use
  Company Number: US-AMGEN-USASP2011045404

PATIENT
  Age: 82 Year
  Sex: Female

DRUGS (15)
  1. CENTRUM SILVER                     /01292501/ [Concomitant]
     Dosage: UNK
  2. PROLIA [Suspect]
     Indication: OSTEOPOROSIS POSTMENOPAUSAL
     Dosage: 60 MG, Q6MO
     Route: 058
     Dates: start: 20110623
  3. B12                                /00056201/ [Concomitant]
     Dosage: UNK UNIT, UNK
  4. CITRACAL                           /00751520/ [Concomitant]
     Dosage: UNK
  5. NEURONTIN [Concomitant]
     Dosage: 1 MG, UNK
  6. VITAMIN D [Concomitant]
     Dosage: 1 IU, UNK
  7. WARFARIN SODIUM [Concomitant]
     Dosage: 1 MG, UNK
  8. BENAZEPRIL HYDROCHLORIDE [Concomitant]
     Dosage: 1 MG, UNK
  9. BIOTIN [Concomitant]
     Dosage: 1 MG, UNK
  10. DETROL [Concomitant]
     Dosage: 1 MG, UNK
  11. LORTAB [Concomitant]
     Dosage: UNK MG, UNK
  12. TOPROL-XL [Concomitant]
     Dosage: 1 MG, UNK
  13. GLUCOSAMINE CHONDROITIN [Concomitant]
     Dosage: UNK
  14. MONASCUS PURPUREUS W/UBIDECARENONE [Concomitant]
     Dosage: 1 MG, UNK
  15. FISH OIL [Concomitant]
     Dosage: 2 UNIT, UNK

REACTIONS (4)
  - HEADACHE [None]
  - DRY MOUTH [None]
  - PAIN IN JAW [None]
  - EAR PAIN [None]
